FAERS Safety Report 24151571 (Version 1)
Quarter: 2024Q3

REPORT INFORMATION
  Report Type: Spontaneous
  Country: US (occurrence: US)
  Receive Date: 20240730
  Receipt Date: 20240730
  Transmission Date: 20241017
  Serious: No
  Sender: PERRIGO
  Company Number: US-PERRIGO-23US012561

PATIENT
  Age: 53 Year
  Sex: Female
  Weight: 72.562 kg

DRUGS (2)
  1. LORATADINE [Suspect]
     Active Substance: LORATADINE
     Indication: Wrong product administered
     Dosage: 20 MG, SINGLE
     Route: 048
     Dates: start: 20231030, end: 20231030
  2. NAPROXEN [Concomitant]
     Active Substance: NAPROXEN
     Indication: Headache
     Dosage: UNK, PRN
     Route: 065

REACTIONS (2)
  - Incorrect dose administered [Unknown]
  - Wrong product administered [Unknown]

NARRATIVE: CASE EVENT DATE: 20231030
